FAERS Safety Report 18601513 (Version 1)
Quarter: 2020Q4

REPORT INFORMATION
  Report Type: Report from Study
  Country: MX (occurrence: MX)
  Receive Date: 20201210
  Receipt Date: 20201210
  Transmission Date: 20210114
  Serious: Yes (Life-Threatening, Hospitalization, Other)
  Sender: FDA-Public Use
  Company Number: NVSC2020MX328843

PATIENT
  Sex: Male
  Weight: 75 kg

DRUGS (2)
  1. TRILEPTAL [Suspect]
     Active Substance: OXCARBAZEPINE
     Indication: SEIZURE
     Dosage: 1 DF, BID
     Route: 048
     Dates: start: 2010
  2. TRILEPTAL [Suspect]
     Active Substance: OXCARBAZEPINE
     Dosage: UNK, Q8H
     Route: 065

REACTIONS (4)
  - Seizure [Unknown]
  - Sedation [Unknown]
  - Neurological infection [Unknown]
  - Epilepsy [Unknown]
